FAERS Safety Report 25547629 (Version 2)
Quarter: 2025Q3

REPORT INFORMATION
  Report Type: Spontaneous
  Country: EU (occurrence: EU)
  Receive Date: 20250714
  Receipt Date: 20250722
  Transmission Date: 20251020
  Serious: Yes (Hospitalization, Other)
  Sender: Norvium Bioscience
  Company Number: EU-Norvium Bioscience LLC-080383

PATIENT
  Age: 3 Decade
  Sex: Male
  Weight: 0 kg

DRUGS (4)
  1. CISPLATIN [Suspect]
     Active Substance: CISPLATIN
     Indication: Neuroendocrine carcinoma
     Dosage: CYCLE 1-3
  2. CARBOPLATIN [Suspect]
     Active Substance: CARBOPLATIN
     Indication: Neuroendocrine carcinoma
  3. ETOPOSIDE [Suspect]
     Active Substance: ETOPOSIDE
     Indication: Neuroendocrine carcinoma
  4. CISPLATIN [Suspect]
     Active Substance: CISPLATIN
     Indication: Neuroendocrine carcinoma
     Dosage: CYCLE 4 AND 5

REACTIONS (7)
  - Tinnitus [Unknown]
  - Superficial vein thrombosis [Unknown]
  - Hypophagia [Unknown]
  - Nausea [Unknown]
  - Mucosal pain [Unknown]
  - Oral pain [Unknown]
  - Oropharyngeal pain [Unknown]
